FAERS Safety Report 6510166-5 (Version None)
Quarter: 2009Q4

REPORT INFORMATION
  Report Type: 
  Country: None (occurrence: None)
  Receive Date: 20091221
  Receipt Date: 20091221
  Transmission Date: 20100525
  Serious: No
  Sender: FDA-Public Use
  Company Number: None

PATIENT
  Age: 29 Year
  Sex: Male
  Weight: 72.5755 kg

DRUGS (1)
  1. DEXTROAMPHETAMINE ER 15MG BARR [Suspect]
     Dosage: 1 CAPSULE TWICE DAILY PO 2-3
     Route: 048

REACTIONS (2)
  - DRUG DISPENSING ERROR [None]
  - INTERCEPTED MEDICATION ERROR [None]
